APPROVED DRUG PRODUCT: ACETAMINOPHEN
Active Ingredient: ACETAMINOPHEN
Strength: 120MG
Dosage Form/Route: SUPPOSITORY;RECTAL
Application: A070607 | Product #001
Applicant: PERRIGO NEW YORK INC
Approved: Apr 6, 1987 | RLD: No | RS: No | Type: OTC